FAERS Safety Report 23725664 (Version 1)
Quarter: 2024Q2

REPORT INFORMATION
  Report Type: Spontaneous
  Country: GB (occurrence: GB)
  Receive Date: 20240410
  Receipt Date: 20240410
  Transmission Date: 20240716
  Serious: Yes (Hospitalization, Other)
  Sender: FDA-Public Use
  Company Number: None

PATIENT
  Age: 91 Year
  Sex: Female

DRUGS (7)
  1. CLARITHROMYCIN [Suspect]
     Active Substance: CLARITHROMYCIN
     Dosage: 500 MG BD
     Route: 065
  2. CALCIUM CARBONATE\CHOLECALCIFEROL [Concomitant]
     Active Substance: CALCIUM CARBONATE\CHOLECALCIFEROL
  3. SIMVASTATIN [Concomitant]
     Active Substance: SIMVASTATIN
  4. ASPIRIN [Concomitant]
     Active Substance: ASPIRIN
  5. QUININE [Concomitant]
     Active Substance: QUININE
  6. LISINOPRIL [Concomitant]
     Active Substance: LISINOPRIL
  7. MEMANTINE [Concomitant]
     Active Substance: MEMANTINE

REACTIONS (1)
  - Generalised tonic-clonic seizure [Recovered/Resolved]
